FAERS Safety Report 5198416-1 (Version None)
Quarter: 2006Q4

REPORT INFORMATION
  Report Type: 
  Country: None (occurrence: None)
  Receive Date: 20061229
  Receipt Date: 20061221
  Transmission Date: 20070319
  Serious: Yes (Hospitalization)
  Sender: FDA-Public Use
  Company Number: 2006PV023524

PATIENT
  Age: 59 Year
  Sex: Female

DRUGS (10)
  1. BYETTA [Suspect]
     Indication: DIABETES MELLITUS NON-INSULIN-DEPENDENT
     Dosage: SEE IMAGE
     Route: 058
     Dates: start: 20051115, end: 20061201
  2. BYETTA [Suspect]
     Indication: DIABETES MELLITUS NON-INSULIN-DEPENDENT
     Dosage: SEE IMAGE
     Route: 058
     Dates: start: 20051201
  3. CALCIUM [Concomitant]
  4. VYTORIN [Concomitant]
  5. LEVOTHYROXINE SODIUM [Concomitant]
  6. ALPRAZOLAM [Concomitant]
  7. GABAPENTIN [Concomitant]
  8. UNIPHYL [Concomitant]
  9. LEXAPRO [Concomitant]
  10. ACIPHEX [Concomitant]

REACTIONS (4)
  - CHOLELITHIASIS [None]
  - DECREASED APPETITE [None]
  - HERNIA REPAIR [None]
  - WEIGHT DECREASED [None]
